FAERS Safety Report 7619126-4 (Version None)
Quarter: 2011Q3

REPORT INFORMATION
  Report Type: 
  Country: None (occurrence: None)
  Receive Date: 20110718
  Receipt Date: 20110707
  Transmission Date: 20111222
  Serious: Yes (Other)
  Sender: FDA-Public Use
  Company Number: SE-AMGEN-SWESP2011017044

PATIENT
  Age: 72 Year
  Sex: Female

DRUGS (3)
  1. NEUPOGEN [Suspect]
     Indication: PRODUCT USED FOR UNKNOWN INDICATION
     Dosage: UNK
     Dates: end: 20110101
  2. RETAKRIT [Concomitant]
  3. REVLIMID [Concomitant]

REACTIONS (4)
  - DIARRHOEA [None]
  - CHEST PAIN [None]
  - ACUTE LEUKAEMIA [None]
  - PALPITATIONS [None]
